FAERS Safety Report 9377898 (Version 15)
Quarter: 2016Q1

REPORT INFORMATION
  Report Type: Report from Study
  Country: BR (occurrence: BR)
  Receive Date: 20130701
  Receipt Date: 20160126
  Transmission Date: 20160526
  Serious: Yes (Hospitalization, Disabling, Other)
  Sender: FDA-Public Use
  Company Number: PHHY2013BR067107

PATIENT
  Sex: Female
  Weight: 84 kg

DRUGS (19)
  1. NOVALGIN [Suspect]
     Active Substance: METAMIZOLE SODIUM
     Indication: OTORRHOEA
  2. SOMATULIN [Suspect]
     Active Substance: LANREOTIDE ACETATE
     Dosage: 1 DF, QMO
     Route: 065
     Dates: start: 201502
  3. ENALAPRIL MALEATE. [Concomitant]
     Active Substance: ENALAPRIL MALEATE
     Dosage: 2 DF, QD (1 TABLET AT LUNCH AND 1 TABLET AT BEDTIME)
     Route: 048
  4. RAZAPINA [Concomitant]
     Active Substance: MIRTAZAPINE
     Indication: SLEEP DISORDER
     Dosage: UNK OT, QHS
     Route: 048
     Dates: start: 201408
  5. INAPRIL [Concomitant]
     Indication: HYPERTENSION
     Dosage: UNK OT, BID
     Route: 065
  6. GARLIC. [Concomitant]
     Active Substance: GARLIC
     Indication: PRODUCT USED FOR UNKNOWN INDICATION
     Dosage: 1 DF, QD
     Route: 048
  7. STUGERON [Concomitant]
     Active Substance: CINNARIZINE
     Indication: VERTIGO
     Dosage: 75 MG, QD
     Route: 065
  8. SANDOSTATIN LAR DEPOT [Suspect]
     Active Substance: OCTREOTIDE ACETATE
     Dosage: 2 DF (2 AMPOULES OF 10 MG), UNK
     Route: 030
     Dates: start: 201412
  9. SANDOSTATIN LAR DEPOT [Suspect]
     Active Substance: OCTREOTIDE ACETATE
     Dosage: 20 MG, (1 INJECTION OF 20 MG) QMO/EVERY 28 DAYS
     Route: 030
     Dates: start: 201501
  10. SOMATULIN [Suspect]
     Active Substance: LANREOTIDE ACETATE
     Indication: ACROMEGALY
     Dosage: 1 DF, QMO
     Route: 030
     Dates: start: 201412
  11. AMLODIPINE BESYLATE. [Concomitant]
     Active Substance: AMLODIPINE BESYLATE
     Indication: HYPERTENSION
     Dosage: 2 DF, QD
     Route: 048
  12. VERTEX [Concomitant]
     Indication: VERTIGO
     Dosage: 1 DF, QD
     Route: 065
  13. CIPROFIBRATE [Suspect]
     Active Substance: CIPROFIBRATE
     Indication: HYPERTENSION
     Route: 065
  14. ENALAPRIL MALEATE. [Concomitant]
     Active Substance: ENALAPRIL MALEATE
     Indication: HYPERTENSION
     Dosage: 2 DF, QD
     Route: 048
  15. ENALAPRIL MALEATE. [Concomitant]
     Active Substance: ENALAPRIL MALEATE
     Dosage: 1 DF, UNK
     Route: 048
  16. VERTEX [Concomitant]
     Indication: DIZZINESS
  17. SANDOSTATIN LAR DEPOT [Suspect]
     Active Substance: OCTREOTIDE ACETATE
     Indication: ACROMEGALY
     Dosage: 20 MG, QMO (EVERY 28 DAYS)
     Route: 030
     Dates: start: 2005, end: 201412
  18. NOVALGIN [Suspect]
     Active Substance: METAMIZOLE SODIUM
     Indication: EAR PAIN
     Route: 065
  19. DORFLEX [Suspect]
     Active Substance: CAFFEINE\DIPYRONE\ORPHENADRINE
     Indication: BACK PAIN
     Route: 065

REACTIONS (69)
  - Blood glucose increased [Unknown]
  - Flatulence [Not Recovered/Not Resolved]
  - Abdominal pain upper [Recovered/Resolved]
  - Hypoacusis [Not Recovered/Not Resolved]
  - Gastric disorder [Unknown]
  - Swelling face [Not Recovered/Not Resolved]
  - Poor quality sleep [Not Recovered/Not Resolved]
  - Hypokinesia [Unknown]
  - Confusional state [Unknown]
  - Productive cough [Unknown]
  - Spinal pain [Not Recovered/Not Resolved]
  - Disturbance in attention [Not Recovered/Not Resolved]
  - Hypoaesthesia [Not Recovered/Not Resolved]
  - Wheezing [Not Recovered/Not Resolved]
  - Somnolence [Not Recovered/Not Resolved]
  - Body fat disorder [Unknown]
  - Fall [Recovered/Resolved]
  - Body height decreased [Not Recovered/Not Resolved]
  - Peripheral swelling [Not Recovered/Not Resolved]
  - Haemorrhage [Unknown]
  - Depressed mood [Unknown]
  - Eye disorder [Not Recovered/Not Resolved]
  - Spinal disorder [Not Recovered/Not Resolved]
  - Decreased appetite [Not Recovered/Not Resolved]
  - Blood pressure increased [Unknown]
  - Labyrinthitis [Recovering/Resolving]
  - Hormone level abnormal [Not Recovered/Not Resolved]
  - Blood cholesterol increased [Recovered/Resolved]
  - Arthralgia [Not Recovered/Not Resolved]
  - Back pain [Unknown]
  - Screaming [Unknown]
  - Suicidal ideation [Not Recovered/Not Resolved]
  - Dysstasia [Not Recovered/Not Resolved]
  - Ear pain [Recovered/Resolved]
  - Rhinorrhoea [Recovering/Resolving]
  - Musculoskeletal stiffness [Not Recovered/Not Resolved]
  - Nervousness [Unknown]
  - Limb discomfort [Unknown]
  - Crying [Unknown]
  - Arthropathy [Not Recovered/Not Resolved]
  - Malaise [Unknown]
  - Kyphosis [Unknown]
  - Injection site haemorrhage [Recovered/Resolved]
  - Osteoarthritis [Recovering/Resolving]
  - Cataract [Recovered/Resolved]
  - Flavivirus infection [Recovered/Resolved]
  - Muscle disorder [Not Recovered/Not Resolved]
  - Balance disorder [Not Recovered/Not Resolved]
  - Fatigue [Not Recovered/Not Resolved]
  - Pain [Recovering/Resolving]
  - Gait disturbance [Not Recovered/Not Resolved]
  - Visual impairment [Not Recovered/Not Resolved]
  - Amnesia [Not Recovered/Not Resolved]
  - Nail growth abnormal [Not Recovered/Not Resolved]
  - Neoplasm [Unknown]
  - Neoplasm progression [Unknown]
  - Vision blurred [Unknown]
  - Impatience [Not Recovered/Not Resolved]
  - Back disorder [Unknown]
  - Dizziness [Unknown]
  - Constipation [Unknown]
  - Weight increased [Not Recovered/Not Resolved]
  - Spinal deformity [Not Recovered/Not Resolved]
  - Otorrhoea [Not Recovered/Not Resolved]
  - Electromyogram abnormal [Unknown]
  - Hypotonia [Not Recovered/Not Resolved]
  - Blood creatinine increased [Recovered/Resolved]
  - Injection site pain [Not Recovered/Not Resolved]
  - Weight decreased [Not Recovered/Not Resolved]

NARRATIVE: CASE EVENT DATE: 2014
